FAERS Safety Report 9551424 (Version 1)
Quarter: 2013Q3

REPORT INFORMATION
  Report Type: Spontaneous
  Country: CH (occurrence: CH)
  Receive Date: 20130925
  Receipt Date: 20130925
  Transmission Date: 20140515
  Serious: Yes (Hospitalization)
  Sender: FDA-Public Use
  Company Number: CH-ASTRAZENECA-2013SE70176

PATIENT
  Age: 63 Year
  Sex: Female
  Weight: 78 kg

DRUGS (14)
  1. SEROQUEL [Suspect]
     Route: 048
     Dates: end: 201306
  2. SEROQUEL [Suspect]
     Route: 048
     Dates: end: 201306
  3. ASPIRIN CARDIO [Concomitant]
     Route: 048
     Dates: end: 201306
  4. NEBILET [Concomitant]
     Route: 048
     Dates: end: 201306
  5. FELODIPIN [Concomitant]
     Route: 048
     Dates: end: 201306
  6. CRESTOR [Concomitant]
     Route: 048
     Dates: end: 201306
  7. METFORMIN [Concomitant]
     Route: 048
     Dates: end: 201306
  8. DIAMICRON [Concomitant]
     Route: 048
     Dates: end: 201306
  9. TEMESTA [Concomitant]
     Route: 048
     Dates: end: 201306
  10. TEMESTA [Concomitant]
     Route: 048
  11. VALDOXAN [Concomitant]
     Route: 048
     Dates: end: 201306
  12. ANAFRANIL SR [Concomitant]
     Route: 048
     Dates: end: 201306
  13. SOLATRAN [Concomitant]
     Route: 048
     Dates: end: 201306
  14. TRIMIPRAMIN [Concomitant]
     Route: 048
     Dates: end: 201306

REACTIONS (6)
  - Catatonia [Recovered/Resolved]
  - Cognitive disorder [Recovered/Resolved]
  - Neuroleptic malignant syndrome [Recovered/Resolved]
  - Pyrexia [Recovered/Resolved]
  - Muscle rigidity [Recovered/Resolved]
  - Blood creatine phosphokinase increased [Unknown]
